FAERS Safety Report 21036490 (Version 2)
Quarter: 2022Q3

REPORT INFORMATION
  Report Type: Report from Study
  Country: US (occurrence: None)
  Receive Date: 20220702
  Receipt Date: 20220718
  Transmission Date: 20221026
  Serious: Yes (Other)
  Sender: FDA-Public Use
  Company Number: US-ROCHE-3118813

PATIENT
  Age: 67 Year
  Sex: Male
  Weight: 76 kg

DRUGS (10)
  1. RANIBIZUMAB [Suspect]
     Active Substance: RANIBIZUMAB
     Indication: Diabetic retinopathy
     Dosage: START DATE OF MOST RECENT DOSE OF STUDY DRUG?PRIOR TO SAE: 13-JUN-2022?EVERY 36 WEEKS
     Route: 050
     Dates: start: 20220512
  2. RANIBIZUMAB [Suspect]
     Active Substance: RANIBIZUMAB
  3. RANIBIZUMAB [Suspect]
     Active Substance: RANIBIZUMAB
  4. RANIBIZUMAB [Suspect]
     Active Substance: RANIBIZUMAB
  5. RANIBIZUMAB [Suspect]
     Active Substance: RANIBIZUMAB
  6. RANIBIZUMAB [Suspect]
     Active Substance: RANIBIZUMAB
  7. RANIBIZUMAB [Concomitant]
     Active Substance: RANIBIZUMAB
     Dosage: DOSE LAST STUDY DRUG ADMIN PRIOR SAE: 0.3 MG/ML?START DATE OF MOST RECENT DOSE OF STUDY DRUG?PRIOR T
     Route: 050
     Dates: start: 20210324
  8. METFORMIN [Concomitant]
     Active Substance: METFORMIN HYDROCHLORIDE
     Indication: Type 2 diabetes mellitus
     Dates: start: 20210929
  9. LISINOPRIL [Concomitant]
     Active Substance: LISINOPRIL
     Indication: Hypertension
     Dates: start: 20211015
  10. ANTIMICROBIALS (UNK INGREDIENTS) [Concomitant]

REACTIONS (1)
  - Visual acuity reduced [Not Recovered/Not Resolved]

NARRATIVE: CASE EVENT DATE: 20220614
